FAERS Safety Report 24320823 (Version 1)
Quarter: 2024Q3

REPORT INFORMATION
  Report Type: Spontaneous
  Country: US (occurrence: US)
  Receive Date: 20240915
  Receipt Date: 20240915
  Transmission Date: 20241016
  Serious: No
  Sender: SANOFI AVENTIS
  Company Number: US-SA-2024SA265426

PATIENT
  Age: 53 Year
  Sex: Male

DRUGS (1)
  1. DUPIXENT [Suspect]
     Active Substance: DUPILUMAB
     Indication: Allergic fungal rhinosinusitis
     Dosage: 300 MG, QOW
     Route: 058

REACTIONS (5)
  - Poor quality sleep [Unknown]
  - Injection site rash [Unknown]
  - Feeling abnormal [Unknown]
  - Pharyngeal oedema [Unknown]
  - Product use in unapproved indication [Unknown]
